FAERS Safety Report 4283231-3 (Version None)
Quarter: 2004Q1

REPORT INFORMATION
  Report Type: 
  Country: None (occurrence: None)
  Receive Date: 20040129
  Receipt Date: 20040114
  Transmission Date: 20041129
  Serious: Yes (Life-Threatening, Hospitalization)
  Sender: FDA-Public Use
  Company Number: 2003AP03783

PATIENT
  Age: 68 Year
  Sex: Male
  Weight: 44 kg

DRUGS (10)
  1. TENORMIN [Suspect]
     Indication: ATRIAL TACHYCARDIA
     Dosage: 50 MG DAILY PO
     Route: 048
     Dates: start: 20031005, end: 20031012
  2. WARFARIN SODIUM [Suspect]
     Indication: PHLEBOTHROMBOSIS
     Dosage: 3 MG DAILY PO
     Route: 048
     Dates: start: 20031001, end: 20031014
  3. PL GRAN [Suspect]
     Indication: NASOPHARYNGITIS
     Dosage: 3 G DAILY PO
     Route: 048
     Dates: start: 20031011, end: 20031012
  4. VOLTAREN [Suspect]
     Indication: PYREXIA
     Dosage: 25-50 MG/DAY
     Dates: start: 20031012, end: 20031014
  5. CEFOTAX [Suspect]
     Indication: MENINGITIS
     Dosage: 2 G DAILY IV
     Route: 042
     Dates: start: 20031012, end: 20031016
  6. ACYCLO-V [Suspect]
     Indication: MENINGITIS
     Dosage: 3 DF DAILY IV
     Route: 042
     Dates: start: 20031012, end: 20031016
  7. CIBENOL [Concomitant]
  8. HEPARIN ^ALIUD PHARMA^ [Concomitant]
  9. TAKEPRON [Concomitant]
  10. NOVO HEPARIN CALCIUM [Concomitant]

REACTIONS (12)
  - ATRIAL FIBRILLATION [None]
  - ATRIAL TACHYCARDIA [None]
  - CHEST X-RAY ABNORMAL [None]
  - COMPUTERISED TOMOGRAM ABNORMAL [None]
  - HYPERSENSITIVITY [None]
  - HYPOTENSION [None]
  - INTERSTITIAL LUNG DISEASE [None]
  - MENINGITIS [None]
  - PNEUMONIA [None]
  - PROTHROMBIN TIME PROLONGED [None]
  - RESPIRATORY RATE DECREASED [None]
  - WHITE BLOOD CELL COUNT INCREASED [None]
